FAERS Safety Report 17811572 (Version 1)
Quarter: 2020Q2

REPORT INFORMATION
  Report Type: Spontaneous
  Country: US (occurrence: US)
  Receive Date: 20200520
  Receipt Date: 20200520
  Transmission Date: 20200714
  Serious: No
  Sender: FDA-Public Use
  Company Number: None

PATIENT
  Age: 23 Year
  Sex: Female

DRUGS (1)
  1. AMBRISENTAN 5MG TABLETS 30/BO: 5MG [Suspect]
     Active Substance: AMBRISENTAN
     Indication: PULMONARY ARTERIAL HYPERTENSION
     Route: 048
     Dates: start: 20200430, end: 20200508

REACTIONS (14)
  - Pharyngeal swelling [None]
  - Drug hypersensitivity [None]
  - Swelling of eyelid [None]
  - Decreased appetite [None]
  - Chromaturia [None]
  - Headache [None]
  - Nasal obstruction [None]
  - Fatigue [None]
  - Pulmonary congestion [None]
  - Swelling face [None]
  - Erythema [None]
  - Hypersensitivity [None]
  - Pyrexia [None]
  - Arthralgia [None]

NARRATIVE: CASE EVENT DATE: 20200508
